FAERS Safety Report 5177381-7 (Version None)
Quarter: 2006Q4

REPORT INFORMATION
  Report Type: 
  Country: None (occurrence: None)
  Receive Date: 20061218
  Receipt Date: 20061121
  Transmission Date: 20070319
  Serious: Yes (Hospitalization)
  Sender: FDA-Public Use
  Company Number: US-AMGEN-US201050

PATIENT
  Sex: Female

DRUGS (1)
  1. ENBREL [Suspect]
     Indication: RHEUMATOID ARTHRITIS
     Route: 058
     Dates: start: 19981201, end: 20060701

REACTIONS (5)
  - CYSTITIS [None]
  - HIP FRACTURE [None]
  - OSTEOPOROSIS [None]
  - RASH GENERALISED [None]
  - RED BLOOD CELL SEDIMENTATION RATE ABNORMAL [None]
